FAERS Safety Report 20518904 (Version 1)
Quarter: 2022Q1

REPORT INFORMATION
  Report Type: Spontaneous
  Country: US (occurrence: None)
  Receive Date: 20220225
  Receipt Date: 20220225
  Transmission Date: 20220423
  Serious: No
  Sender: FDA-Public Use
  Company Number: None

PATIENT
  Age: 37 Year
  Sex: Female

DRUGS (1)
  1. BUPRENORPHINE\NALOXONE [Suspect]
     Active Substance: BUPRENORPHINE\NALOXONE
     Indication: Drug dependence
     Dosage: OTHER QUANTITY : 1-2 DAILY;?FREQUENCY : DAILY;?
     Route: 060
     Dates: start: 20220225, end: 2022

REACTIONS (4)
  - Nausea [None]
  - Abdominal pain [None]
  - Fatigue [None]
  - Insomnia [None]
